FAERS Safety Report 4496691-X (Version None)
Quarter: 2004Q4

REPORT INFORMATION
  Report Type: 
  Country: None (occurrence: None)
  Receive Date: 20041108
  Receipt Date: 20041108
  Transmission Date: 20050328
  Serious: Yes (Disabling)
  Sender: FDA-Public Use
  Company Number: None

PATIENT

DRUGS (15)
  1. TICLOPIDINE HCL [Suspect]
     Indication: CORONARY ARTERY DISEASE
     Dosage: 250 MG PO BID
     Route: 048
     Dates: start: 20041012
  2. FUROSEMIDE [Concomitant]
  3. LOVASTATIN [Concomitant]
  4. SYNTHROID [Concomitant]
  5. ASPIRIN [Concomitant]
  6. HYDROXYCHLOROQUINE [Concomitant]
  7. COREG [Concomitant]
  8. ISOSORBIDE [Concomitant]
  9. METHOTREXATE [Concomitant]
  10. VITAMIN E WITH B-6,B-12 AND FOLIC ACID [Concomitant]
  11. KLOR-CON [Concomitant]
  12. TRIAMTERENC/HCTC [Concomitant]
  13. TICLOPIDINE HCL [Concomitant]
  14. VYTORIN [Concomitant]
  15. LORATADINE [Concomitant]

REACTIONS (2)
  - GASTROINTESTINAL DISORDER [None]
  - PHARMACEUTICAL PRODUCT COMPLAINT [None]
